FAERS Safety Report 21606769 (Version 1)
Quarter: 2022Q4

REPORT INFORMATION
  Report Type: Spontaneous
  Country: BE (occurrence: BE)
  Receive Date: 20221117
  Receipt Date: 20221117
  Transmission Date: 20230113
  Serious: Yes (Hospitalization, Other)
  Sender: FDA-Public Use
  Company Number: None

PATIENT
  Age: 31 Year
  Sex: Female
  Weight: 60 kg

DRUGS (11)
  1. DOCETAXEL [Suspect]
     Active Substance: DOCETAXEL
     Indication: Breast cancer
     Dosage: UNK
     Dates: start: 20220505, end: 20220505
  2. IMODIUM [Concomitant]
     Active Substance: LOPERAMIDE HYDROCHLORIDE
     Indication: Diarrhoea
     Dosage: UNK, IN CASE OF DIARRHEA TILL 8 CO / DAY
     Route: 048
  3. ZOLPIDEM [Concomitant]
     Active Substance: ZOLPIDEM TARTRATE
     Dosage: 1 DF, QD, EVENING
     Route: 048
  4. ACETAMINOPHEN [Concomitant]
     Active Substance: ACETAMINOPHEN
     Indication: Pain
     Dosage: UNK,DAILY EVERY 6H IN CASE OF PAIN
     Route: 048
  5. XANAX [Concomitant]
     Active Substance: ALPRAZOLAM
     Indication: Insomnia
     Dosage: UNK, DAILY EVERY 6H IN CASE OF UNREST OR SLEEPLESSNESS
     Route: 048
  6. MOVICOL [Concomitant]
     Active Substance: POLYETHYLENE GLYCOL 3350\POTASSIUM CHLORIDE\SODIUM BICARBONATE\SODIUM CHLORIDE
     Indication: Constipation
     Dosage: 1 DF, 2 X / DAY 1 SACHET, IN CASE OF CONSTIPATION
     Route: 048
  7. TRIPTORELIN [Concomitant]
     Active Substance: TRIPTORELIN
     Dosage: 1 DF, Q4W, 1X/4 WEEKS IM, LAST RECEIVED ON 25/04/2022
     Route: 030
     Dates: end: 20220425
  8. ALIZAPRIDE HYDROCHLORIDE [Concomitant]
     Active Substance: ALIZAPRIDE HYDROCHLORIDE
     Indication: Nausea
     Dosage: UNK, UNTIL 6 CO / DAY IN CASE OF NAUSEA
     Route: 048
  9. IBUPROFEN [Concomitant]
     Active Substance: IBUPROFEN
     Dosage: 3 DF, Q8H, DAILY 3X/DAY (07H - 15H - 23H)
     Route: 048
  10. IBUPROFEN [Concomitant]
     Active Substance: IBUPROFEN
     Indication: Pain
     Dosage: UNK UNK, Q8H, EVERY 8H IN CASE OF PAIN UNADEQUATELY CONTROLLED WITH PARACETAMOL
     Route: 048
  11. DEXAMETHASONE [Concomitant]
     Active Substance: DEXAMETHASONE
     Dosage: UNK, 1 PACK 12H AND 6H BEFORE CHEMO AND 1 PACK 12H, 24H AND 36H AFTER CHEMO
     Route: 048

REACTIONS (5)
  - Syncope [Recovered/Resolved]
  - Throat irritation [Recovered/Resolved]
  - Chest discomfort [Recovered/Resolved]
  - Dyspnoea [Recovered/Resolved]
  - Hypersensitivity [Recovered/Resolved]

NARRATIVE: CASE EVENT DATE: 20220505
